FAERS Safety Report 15607359 (Version 1)
Quarter: 2018Q4

REPORT INFORMATION
  Report Type: Spontaneous
  Country: US (occurrence: US)
  Receive Date: 20181112
  Receipt Date: 20181112
  Transmission Date: 20190205
  Serious: Yes (Hospitalization, Other)
  Sender: FDA-Public Use
  Company Number: US-MALLINCKRODT-T201804836

PATIENT
  Age: 81 Year
  Sex: Female

DRUGS (2)
  1. H.P. ACTHAR [Suspect]
     Active Substance: CORTICOTROPIN
     Dosage: 1 ML TWICE WEEKLY
     Route: 058
     Dates: start: 2018
  2. H.P. ACTHAR [Suspect]
     Active Substance: CORTICOTROPIN
     Indication: SARCOIDOSIS
     Dosage: 1 ML TWICE WEEKLY
     Route: 058
     Dates: end: 2018

REACTIONS (20)
  - Nervousness [Unknown]
  - Weight decreased [Unknown]
  - Choking sensation [Unknown]
  - Increased appetite [Unknown]
  - Asthenia [Unknown]
  - Dyspnoea [Unknown]
  - Gastrointestinal disorder [Unknown]
  - Tremor [Unknown]
  - Influenza [Unknown]
  - Injection site discolouration [Unknown]
  - Substance-induced psychotic disorder [Recovered/Resolved]
  - Heart rate increased [Unknown]
  - Malaise [Unknown]
  - Nausea [Unknown]
  - Gallbladder disorder [Unknown]
  - Pneumonia [Unknown]
  - Overdose [Unknown]
  - Treatment noncompliance [Unknown]
  - Rhinorrhoea [Unknown]
  - Appetite disorder [Unknown]

NARRATIVE: CASE EVENT DATE: 2018
